FAERS Safety Report 7769733-3 (Version None)
Quarter: 2011Q3

REPORT INFORMATION
  Report Type: 
  Country: None (occurrence: None)
  Receive Date: 20110922
  Receipt Date: 20110126
  Transmission Date: 20111222
  Serious: No
  Sender: FDA-Public Use
  Company Number: US-ASTRAZENECA-2010SE02053

PATIENT
  Sex: Female
  Weight: 86.2 kg

DRUGS (4)
  1. SEROQUEL [Suspect]
     Indication: BIPOLAR DISORDER
     Route: 048
  2. XANAX [Concomitant]
     Dosage: THREE TIMES A DAY
  3. TRAZODONE HYDROCHLORIDE [Concomitant]
  4. SEROQUEL [Suspect]
     Route: 048
     Dates: start: 20090101

REACTIONS (4)
  - WEIGHT INCREASED [None]
  - BALANCE DISORDER [None]
  - FALL [None]
  - HEADACHE [None]
